FAERS Safety Report 8080728-5 (Version None)
Quarter: 2012Q1

REPORT INFORMATION
  Report Type: 
  Country: None (occurrence: None)
  Receive Date: 20120130
  Receipt Date: 20120125
  Transmission Date: 20120608
  Serious: Yes (Life-Threatening, Hospitalization, Other)
  Sender: FDA-Public Use
  Company Number: PHHY2012JP006817

PATIENT
  Sex: Male

DRUGS (9)
  1. NEORAL [Suspect]
     Indication: MYELODYSPLASTIC SYNDROME
     Dosage: 125 MG,DAILY
     Route: 048
  2. PREDNISOLONE [Concomitant]
     Dosage: 60 MG, UNK
  3. EXJADE [Suspect]
     Dosage: 500 MG, DAILY
     Route: 048
     Dates: start: 20120120
  4. PREDNISOLONE [Concomitant]
     Dosage: 12.5 MG, UNK
  5. RABEPRAZOLE SODIUM [Concomitant]
     Route: 048
  6. EXJADE [Suspect]
     Indication: IRON OVERLOAD
     Dosage: 500 MG,DAILY
     Route: 048
     Dates: start: 20120106, end: 20120118
  7. CALCIUM [Concomitant]
  8. GLAKAY [Concomitant]
     Route: 048
  9. ONEALFA [Concomitant]
     Route: 048

REACTIONS (6)
  - STEVENS-JOHNSON SYNDROME [None]
  - DRUG ERUPTION [None]
  - RASH [None]
  - ORAL MUCOSA EROSION [None]
  - PYREXIA [None]
  - PNEUMONIA [None]
